FAERS Safety Report 6669261-2 (Version None)
Quarter: 2010Q2

REPORT INFORMATION
  Report Type: 
  Country: None (occurrence: None)
  Receive Date: 20100406
  Receipt Date: 20100331
  Transmission Date: 20101027
  Serious: Yes (Death, Other)
  Sender: FDA-Public Use
  Company Number: HU-ELI_LILLY_AND_COMPANY-HU201003008538

PATIENT
  Sex: Male

DRUGS (2)
  1. ALIMTA [Suspect]
     Indication: NON-SMALL CELL LUNG CANCER
     Dosage: 900 MG, UNK
     Route: 065
     Dates: start: 20100301, end: 20100301
  2. KONAKION [Concomitant]
     Dosage: UNK, UNKNOWN
     Route: 065
     Dates: start: 20100311

REACTIONS (5)
  - ANAEMIA [None]
  - CARDIOVASCULAR INSUFFICIENCY [None]
  - DIARRHOEA HAEMORRHAGIC [None]
  - PLATELET COUNT DECREASED [None]
  - RESPIRATORY FAILURE [None]
